FAERS Safety Report 5527350-X (Version None)
Quarter: 2007Q4

REPORT INFORMATION
  Report Type: 
  Country: None (occurrence: None)
  Receive Date: 20071128
  Receipt Date: 20071116
  Transmission Date: 20080405
  Serious: Yes (Life-Threatening)
  Sender: FDA-Public Use
  Company Number: B0497070A

PATIENT
  Age: 33 Year
  Sex: Female

DRUGS (5)
  1. AUGMENTIN '125' [Suspect]
     Indication: ANTIBIOTIC PROPHYLAXIS
     Dosage: 2G PER DAY
     Route: 042
     Dates: start: 20070725, end: 20070725
  2. DIPRIVAN [Concomitant]
     Route: 042
     Dates: start: 20070725, end: 20070725
  3. ULTIVA [Concomitant]
     Route: 042
     Dates: start: 20070725, end: 20070725
  4. XYLOCAINE [Concomitant]
     Indication: NASAL CAVITY PACKING
     Route: 061
     Dates: start: 20070725, end: 20070725
  5. KESTIN [Concomitant]
     Route: 065

REACTIONS (4)
  - ANAPHYLACTIC SHOCK [None]
  - ERYTHEMA [None]
  - HYPOTENSION [None]
  - OXYGEN SATURATION DECREASED [None]
